FAERS Safety Report 9766815 (Version 2)
Quarter: 2014Q1

REPORT INFORMATION
  Report Type: Spontaneous
  Country: US (occurrence: US)
  Receive Date: 20131217
  Receipt Date: 20140226
  Transmission Date: 20141002
  Serious: No
  Sender: FDA-Public Use
  Company Number: US-009507513-1312USA006568

PATIENT
  Sex: Female
  Weight: 86.62 kg

DRUGS (3)
  1. NEXPLANON [Suspect]
     Indication: CONTRACEPTION
     Dosage: 1 ROD PER THREE YEARS IN THE LEFT ARM
     Route: 059
     Dates: start: 20120508, end: 20131206
  2. NEXPLANON [Suspect]
     Dosage: UNK
     Route: 059
     Dates: start: 20131206
  3. IMITREX (SUMATRIPTAN) [Concomitant]

REACTIONS (3)
  - Limb discomfort [Recovering/Resolving]
  - Device kink [Recovering/Resolving]
  - Device breakage [Recovering/Resolving]
